FAERS Safety Report 24778230 (Version 1)
Quarter: 2024Q4

REPORT INFORMATION
  Report Type: Report from Study
  Country: US (occurrence: US)
  Receive Date: 20241226
  Receipt Date: 20241226
  Transmission Date: 20250115
  Serious: Yes (Death)
  Sender: MALLINCKRODT
  Company Number: US-MALLINCKRODT-MNK202407655

PATIENT

DRUGS (2)
  1. NITRIC OXIDE [Suspect]
     Active Substance: NITRIC OXIDE
     Indication: Newborn persistent pulmonary hypertension
     Dosage: UNKNOWN
     Route: 055
  2. ILOPROST [Concomitant]
     Active Substance: ILOPROST
     Indication: Newborn persistent pulmonary hypertension
     Dosage: 0.5 TO 2.5 UG/KG
     Route: 055

REACTIONS (2)
  - Death [Fatal]
  - Therapy non-responder [Unknown]
